FAERS Safety Report 25433721 (Version 1)
Quarter: 2025Q2

REPORT INFORMATION
  Report Type: Spontaneous
  Country: US (occurrence: US)
  Receive Date: 20250613
  Receipt Date: 20250613
  Transmission Date: 20250717
  Serious: No
  Sender: MERCK SHARP & DOHME LLC
  Company Number: US-009507513-2290444

PATIENT
  Age: 58 Year
  Sex: Male

DRUGS (3)
  1. PEMBROLIZUMAB [Suspect]
     Active Substance: PEMBROLIZUMAB
     Indication: Thyroid cancer
     Dates: start: 2025
  2. LENVATINIB MESYLATE [Suspect]
     Active Substance: LENVATINIB MESYLATE
     Indication: Thyroid cancer
     Route: 048
     Dates: start: 20250410
  3. LENVATINIB MESYLATE [Suspect]
     Active Substance: LENVATINIB MESYLATE
     Indication: Thyroid cancer
     Dates: start: 2025

REACTIONS (6)
  - Constipation [Unknown]
  - Hypertension [Unknown]
  - Poor quality sleep [Unknown]
  - Arthritis [Unknown]
  - Fatigue [Unknown]
  - Product use in unapproved indication [Unknown]
